FAERS Safety Report 4535816-4 (Version None)
Quarter: 2004Q4

REPORT INFORMATION
  Report Type: 
  Country: None (occurrence: None)
  Receive Date: 20041223
  Receipt Date: 20040401
  Transmission Date: 20050328
  Serious: No
  Sender: FDA-Public Use
  Company Number: US-GLAXOSMITHKLINE-A0505594A

PATIENT
  Age: 45 Year
  Sex: Female

DRUGS (7)
  1. FLONASE [Suspect]
     Dosage: 2SPR PER DAY
     Route: 045
     Dates: start: 20040401
  2. MUCO-FEN DM [Concomitant]
     Dates: start: 20040331
  3. LEVOXYL [Concomitant]
  4. ALLEGRA-D [Concomitant]
  5. MOTRIN [Concomitant]
  6. MULTI-VITAMIN [Concomitant]
  7. BENADRYL [Concomitant]

REACTIONS (2)
  - ABDOMINAL PAIN UPPER [None]
  - DIARRHOEA [None]
